FAERS Safety Report 5249464-4 (Version None)
Quarter: 2007Q1

REPORT INFORMATION
  Report Type: 
  Country: None (occurrence: None)
  Receive Date: 20070228
  Receipt Date: 20061109
  Transmission Date: 20070707
  Serious: No
  Sender: FDA-Public Use
  Company Number: US-GLAXOSMITHKLINE-A0626878A

PATIENT
  Age: 50 Year
  Sex: Female

DRUGS (1)
  1. VALTREX [Suspect]
     Dosage: 1G VARIABLE DOSE
     Route: 048
     Dates: start: 20061109

REACTIONS (3)
  - DRUG ADMINISTRATION ERROR [None]
  - EYELID OEDEMA [None]
  - RASH [None]
